FAERS Safety Report 7541635-7 (Version None)
Quarter: 2011Q2

REPORT INFORMATION
  Report Type: 
  Country: None (occurrence: None)
  Receive Date: 20110613
  Receipt Date: 20110601
  Transmission Date: 20111010
  Serious: No
  Sender: FDA-Public Use
  Company Number: CA-ELI_LILLY_AND_COMPANY-CA201106000250

PATIENT
  Sex: Female

DRUGS (10)
  1. ZYPREXA [Suspect]
     Indication: BIPOLAR DISORDER
     Dosage: 15 MG, EACH EVENING
  2. ZYPREXA ZYDIS [Suspect]
     Indication: BIPOLAR DISORDER
     Dosage: 20 MG, EACH EVENING
  3. TEMAZEPAM [Concomitant]
  4. SYNTHROID [Concomitant]
  5. ZYPREXA [Suspect]
     Dosage: 25 MG, EACH EVENING
  6. PROZAC [Concomitant]
  7. CLONAZEPAM [Concomitant]
  8. ZYPREXA [Suspect]
     Dosage: 30 MG, QD
  9. HYDROCHLOROTHIAZIDE [Concomitant]
  10. PERPHENAZINE [Concomitant]

REACTIONS (11)
  - TYPE 2 DIABETES MELLITUS [None]
  - WEIGHT INCREASED [None]
  - LOW DENSITY LIPOPROTEIN INCREASED [None]
  - PARAESTHESIA [None]
  - BRONCHITIS [None]
  - OVERDOSE [None]
  - OCCULT BLOOD POSITIVE [None]
  - BLOOD PRESSURE INCREASED [None]
  - BLOOD URINE [None]
  - TOOTH INFECTION [None]
  - VIRAL SINUSITIS [None]
